FAERS Safety Report 6700864-2 (Version None)
Quarter: 2010Q2

REPORT INFORMATION
  Report Type: 
  Country: None (occurrence: None)
  Receive Date: 20100428
  Receipt Date: 20100421
  Transmission Date: 20101027
  Serious: Yes (Life-Threatening, Hospitalization, Other)
  Sender: FDA-Public Use
  Company Number: FR-ELI_LILLY_AND_COMPANY-FR201004005531

PATIENT
  Sex: Female

DRUGS (15)
  1. GEMZAR [Suspect]
     Indication: PANCREATIC CARCINOMA
     Dosage: 1000 MG/M2, WEEKLY (1/W)
     Route: 042
     Dates: start: 20090916, end: 20100209
  2. SOLUPRED [Concomitant]
     Dosage: 60 MG, DAILY (1/D)
     Route: 065
  3. FORLAX [Concomitant]
     Dosage: 4000 D/F, 2/D
     Route: 065
  4. VASTAREL [Concomitant]
     Dosage: UNK, DAILY (1/D)
     Route: 065
  5. DAFALGAN [Concomitant]
     Dosage: UNK, 3/D
     Route: 065
  6. TRANXENE [Concomitant]
     Dosage: 10 D/F, DAILY (1/D)
     Route: 065
  7. NEXIUM [Concomitant]
     Dosage: UNK, DAILY (1/D)
     Route: 065
  8. LASIX [Concomitant]
     Dosage: 40 D/F, DAILY (1/D)
     Route: 065
  9. COVERSYL [Concomitant]
     Dosage: 5 MG, DAILY (1/D)
     Route: 065
  10. AMLOR [Concomitant]
     Dosage: 5 MG, DAILY (1/D)
     Route: 065
  11. ASPEGIC 1000 [Concomitant]
     Dosage: 1 G, 3/D
     Route: 065
  12. TAREG [Concomitant]
     Dosage: 160 MG, UNKNOWN
     Route: 065
  13. ISOPTIN [Concomitant]
     Dosage: UNK, UNKNOWN
     Route: 065
  14. LOXEN [Concomitant]
     Dosage: UNK, UNKNOWN
     Route: 042
  15. RISORDAN [Concomitant]
     Dosage: UNK, UNKNOWN
     Route: 042

REACTIONS (16)
  - ACUTE PULMONARY OEDEMA [None]
  - ANAEMIA [None]
  - ANISOCYTOSIS [None]
  - BLOOD BILIRUBIN INCREASED [None]
  - BLOOD CREATININE INCREASED [None]
  - BLOOD LACTATE DEHYDROGENASE INCREASED [None]
  - BLOOD UREA INCREASED [None]
  - DYSPNOEA [None]
  - HAEMOLYTIC URAEMIC SYNDROME [None]
  - HYPERTENSIVE CRISIS [None]
  - OXYGEN SATURATION DECREASED [None]
  - PALLOR [None]
  - PARANEOPLASTIC SYNDROME [None]
  - RENAL FAILURE [None]
  - RETICULOCYTE COUNT ABNORMAL [None]
  - THROMBOCYTOPENIA [None]
